FAERS Safety Report 16170575 (Version 1)
Quarter: 2019Q2

REPORT INFORMATION
  Report Type: Report from Study
  Country: IT (occurrence: IT)
  Receive Date: 20190408
  Receipt Date: 20190408
  Transmission Date: 20190711
  Serious: Yes (Hospitalization)
  Sender: FDA-Public Use
  Company Number: IT-TEVA-2019-IT-1034141

PATIENT
  Age: 78 Year
  Sex: Female

DRUGS (11)
  1. FUROSEMIDE. [Suspect]
     Active Substance: FUROSEMIDE
     Indication: DRUG ABUSE
     Route: 048
     Dates: start: 20190227, end: 20190227
  2. EFEXOR 75 MG CAPSULE RIGIDE A RILASCIO PROLUNGATO [Suspect]
     Active Substance: VENLAFAXINE HYDROCHLORIDE
     Indication: DRUG ABUSE
     Route: 048
     Dates: start: 20190227, end: 20190227
  3. SIMVASTATIN. [Suspect]
     Active Substance: SIMVASTATIN
     Indication: DRUG ABUSE
     Route: 048
     Dates: start: 20190227, end: 20190227
  4. FERRO-GRAD [Suspect]
     Active Substance: FERROUS SULFATE
     Indication: DRUG ABUSE
     Route: 048
     Dates: start: 20190227, end: 20190227
  5. NOVONORM 1 MG TABLETS [Suspect]
     Active Substance: REPAGLINIDE
     Indication: DRUG ABUSE
     Route: 048
     Dates: start: 20190227, end: 20190227
  6. BISOPROLOL FUMARATE. [Suspect]
     Active Substance: BISOPROLOL FUMARATE
     Indication: DRUG ABUSE
     Route: 048
     Dates: start: 20190227, end: 20190227
  7. LYRICA [Suspect]
     Active Substance: PREGABALIN
     Indication: DRUG ABUSE
     Route: 048
     Dates: start: 20190227, end: 20190227
  8. OLANZAPINE. [Suspect]
     Active Substance: OLANZAPINE
     Indication: DRUG ABUSE
     Route: 048
     Dates: start: 20190227, end: 20190227
  9. RAMIPRIL. [Suspect]
     Active Substance: RAMIPRIL
     Indication: DRUG ABUSE
     Route: 048
     Dates: start: 20190227, end: 20190227
  10. BARNIDIPINE HYDROCHLORIDE [Suspect]
     Active Substance: BARNIDIPINE HYDROCHLORIDE
     Indication: DRUG ABUSE
     Route: 048
     Dates: start: 20190227, end: 20190227
  11. CARDIOASPIRIN 100 MG COMPRESSE GASTRORESISTENTI [Suspect]
     Active Substance: ASPIRIN
     Indication: DRUG ABUSE
     Dosage: 7 DOSAGE FORMS DAILY;
     Route: 048
     Dates: start: 20190227, end: 20190227

REACTIONS (3)
  - Hypoxia [Recovering/Resolving]
  - Sopor [Recovering/Resolving]
  - Electrocardiogram QT prolonged [Recovering/Resolving]

NARRATIVE: CASE EVENT DATE: 20190227
